FAERS Safety Report 6974228-0 (Version None)
Quarter: 2010Q3

REPORT INFORMATION
  Report Type: 
  Country: None (occurrence: None)
  Receive Date: 20100909
  Receipt Date: 20080509
  Transmission Date: 20110219
  Serious: No
  Sender: FDA-Public Use
  Company Number: US-WYE-H04075208

PATIENT
  Sex: Female
  Weight: 88.08 kg

DRUGS (1)
  1. PROTONIX [Suspect]
     Indication: GASTROOESOPHAGEAL REFLUX DISEASE
     Route: 048
     Dates: start: 20080425, end: 20080506

REACTIONS (3)
  - ABDOMINAL DISTENSION [None]
  - SWELLING [None]
  - WEIGHT INCREASED [None]
